FAERS Safety Report 23598239 (Version 1)
Quarter: 2024Q1

REPORT INFORMATION
  Report Type: Spontaneous
  Country: US (occurrence: US)
  Receive Date: 20240305
  Receipt Date: 20240305
  Transmission Date: 20240410
  Serious: Yes (Hospitalization, Other)
  Sender: FDA-Public Use
  Company Number: US-BRISTOL-MYERS SQUIBB COMPANY-2024-035152

PATIENT
  Age: 61 Year
  Sex: Male
  Weight: 122.47 kg

DRUGS (1)
  1. REVLIMID [Suspect]
     Active Substance: LENALIDOMIDE
     Indication: Plasma cell myeloma
     Dosage: FREQUENCY: 3 WEEKS ON; 1 WEEK OFF
     Route: 048
     Dates: start: 20240201

REACTIONS (2)
  - Pulmonary thrombosis [Recovering/Resolving]
  - Fall [Recovering/Resolving]
